FAERS Safety Report 4269794-2 (Version None)
Quarter: 2004Q1

REPORT INFORMATION
  Report Type: 
  Country: None (occurrence: None)
  Receive Date: 20040113
  Receipt Date: 20031224
  Transmission Date: 20041129
  Serious: No
  Sender: FDA-Public Use
  Company Number: 6990

PATIENT
  Sex: Male

DRUGS (1)
  1. AMIODARONE [Suspect]
     Dates: start: 20011201, end: 20031201

REACTIONS (2)
  - DRUG INEFFECTIVE [None]
  - HYPERTHYROIDISM [None]
